FAERS Safety Report 25647122 (Version 1)
Quarter: 2025Q3

REPORT INFORMATION
  Report Type: Spontaneous
  Country: RU (occurrence: RU)
  Receive Date: 20250806
  Receipt Date: 20250806
  Transmission Date: 20251020
  Serious: Yes (Other)
  Sender: CHEPLAPHARM
  Company Number: RU-ROCHE-2941381

PATIENT
  Age: 50 Year
  Sex: Female
  Weight: 82 kg

DRUGS (6)
  1. CAPECITABINE [Suspect]
     Active Substance: CAPECITABINE
     Indication: Triple negative breast cancer
     Dosage: DATE OF MOST RECENT DOSE (1800 MG) OF CAPECITABINE PRIOR TO AE ONSET : 23/SEP/2021
     Route: 048
     Dates: start: 20210713
  2. CAPECITABINE [Suspect]
     Active Substance: CAPECITABINE
     Indication: Triple negative breast cancer
     Route: 048
  3. ATEZOLIZUMAB [Suspect]
     Active Substance: ATEZOLIZUMAB
     Dosage: DATE OF MOST RECENT DOSE OF BLINDED ATEZOLIZUMAB PRIOR TO AE ONSET : 14/SEP/2021
     Route: 042
     Dates: start: 20210713
  4. NEBIVOLOL [Concomitant]
     Active Substance: NEBIVOLOL
     Indication: Hypertension
  5. PRESTANS [Concomitant]
     Indication: Obesity
  6. ONDANSETRON [Concomitant]
     Active Substance: ONDANSETRON
     Dates: start: 20210721, end: 20210726

REACTIONS (1)
  - Autoimmune thyroiditis [Recovered/Resolved]

NARRATIVE: CASE EVENT DATE: 20210916
